FAERS Safety Report 19059614 (Version 1)
Quarter: 2021Q1

REPORT INFORMATION
  Report Type: Spontaneous
  Country: GB (occurrence: GB)
  Receive Date: 20210326
  Receipt Date: 20210326
  Transmission Date: 20210420
  Serious: Yes (Death)
  Sender: FDA-Public Use
  Company Number: GB-CELLTRION INC.-2021GB003851

PATIENT

DRUGS (4)
  1. METHYLPREDNISOLONE. [Suspect]
     Active Substance: METHYLPREDNISOLONE
     Dosage: 100 MG, (2 X INTRAVENOUS INFUSIONS OF 1000 MG RITUXIMAB WITH 100 MG INTRAVENOUS METHYLPREDNISOLONE 1
     Route: 042
  2. RITUXIMAB (UNKNOWN) [Suspect]
     Active Substance: RITUXIMAB
     Indication: RHEUMATOID ARTHRITIS
     Dosage: 1000 MG, (2 X INTRAVENOUS INFUSIONS OF 1000 MG RITUXIMAB WITH 100 MG INTRAVENOUS METHYLPREDNISOLONE
     Route: 042
  3. RITUXIMAB (UNKNOWN) [Suspect]
     Active Substance: RITUXIMAB
     Dosage: 1000 MG, (2 X INTRAVENOUS INFUSIONS OF 1000 MG RITUXIMAB WITH 100 MG INTRAVENOUS METHYLPREDNISOLONE
     Route: 042
  4. METHYLPREDNISOLONE. [Suspect]
     Active Substance: METHYLPREDNISOLONE
     Indication: RHEUMATOID ARTHRITIS
     Dosage: 100 MG, (2 X INTRAVENOUS INFUSIONS OF 1000 MG RITUXIMAB WITH 100 MG INTRAVENOUS METHYLPREDNISOLONE 1
     Route: 042

REACTIONS (2)
  - Respiratory failure [Fatal]
  - Pneumonitis [Fatal]
